FAERS Safety Report 4303802-5 (Version None)
Quarter: 2004Q1

REPORT INFORMATION
  Report Type: 
  Country: None (occurrence: None)
  Receive Date: 20040224
  Receipt Date: 20040224
  Transmission Date: 20041129
  Serious: No
  Sender: FDA-Public Use
  Company Number: None

PATIENT
  Age: 85 Year
  Sex: Female

DRUGS (1)
  1. HEPARIN [Suspect]

REACTIONS (4)
  - HAND AMPUTATION [None]
  - HEPARIN-INDUCED THROMBOCYTOPENIA [None]
  - IMMUNE SYSTEM DISORDER [None]
  - LEG AMPUTATION [None]
